FAERS Safety Report 7158337-1 (Version None)
Quarter: 2010Q4

REPORT INFORMATION
  Report Type: 
  Country: None (occurrence: None)
  Receive Date: 20101214
  Receipt Date: 20100330
  Transmission Date: 20110411
  Serious: No
  Sender: FDA-Public Use
  Company Number: US-PFIZER INC-2010041398

PATIENT
  Sex: Female
  Weight: 63.492 kg

DRUGS (3)
  1. ARTHROTEC [Suspect]
     Indication: ARTHRALGIA
     Dosage: 50 MG, 1X/DAY
     Route: 048
     Dates: start: 20100201, end: 20100301
  2. ARTHROTEC [Suspect]
     Indication: BACK PAIN
     Dosage: 50 MG, 1X/DAY
     Dates: start: 20100301, end: 20100301
  3. NEXIUM [Concomitant]
     Indication: GASTROOESOPHAGEAL REFLUX DISEASE
     Dosage: UNK

REACTIONS (2)
  - ABDOMINAL PAIN UPPER [None]
  - NAUSEA [None]
